FAERS Safety Report 4505734-6 (Version None)
Quarter: 2004Q4

REPORT INFORMATION
  Report Type: 
  Country: None (occurrence: None)
  Receive Date: 20041119
  Receipt Date: 20040720
  Transmission Date: 20050328
  Serious: Yes (Death, Life-Threatening, Hospitalization, Disabling)
  Sender: FDA-Public Use
  Company Number: CA-GLAXOSMITHKLINE-A0519333A

PATIENT
  Age: 32 Year
  Sex: Male
  Weight: 78.5 kg

DRUGS (5)
  1. PAXIL [Suspect]
     Indication: DRUG USE FOR UNKNOWN INDICATION
     Dosage: 60MG PER DAY
     Route: 050
     Dates: start: 20011224
  2. OLANZAPINE [Concomitant]
     Dosage: 10MG PER DAY
     Dates: start: 20020501
  3. VALPROIC ACID [Concomitant]
     Dosage: 500MG TWICE PER DAY
     Dates: start: 20010401
  4. ZOPICLONE [Concomitant]
     Dosage: 7.5MG PER DAY
  5. CLONAZEPAM [Concomitant]
     Dosage: .35MG PER DAY

REACTIONS (4)
  - CONVULSION [None]
  - LOSS OF CONSCIOUSNESS [None]
  - SEROTONIN SYNDROME [None]
  - STATUS EPILEPTICUS [None]
